FAERS Safety Report 6631180-5 (Version None)
Quarter: 2010Q1

REPORT INFORMATION
  Report Type: 
  Country: None (occurrence: None)
  Receive Date: 20100309
  Receipt Date: 20100302
  Transmission Date: 20100710
  Serious: Yes (Other)
  Sender: FDA-Public Use
  Company Number: 008180

PATIENT
  Sex: Female
  Weight: 3.2 kg

DRUGS (2)
  1. XYZAL [Suspect]
     Indication: RHINITIS ALLERGIC
     Dosage: (1 TABLET DAILY DOSE FREQ.: DAILY TRANSPLACENTAL)
     Route: 064
     Dates: start: 20090523, end: 20090615
  2. QUESTRAN [Concomitant]

REACTIONS (3)
  - AMNIOCENTESIS ABNORMAL [None]
  - CONSTIPATION [None]
  - MATERNAL DRUGS AFFECTING FOETUS [None]
